FAERS Safety Report 4702629-X (Version None)
Quarter: 2005Q2

REPORT INFORMATION
  Report Type: 
  Country: None (occurrence: None)
  Receive Date: 20050629
  Receipt Date: 20040517
  Transmission Date: 20051028
  Serious: No
  Sender: FDA-Public Use
  Company Number: US-GLAXOSMITHKLINE-A0511110A

PATIENT
  Age: 30 Year
  Sex: Female

DRUGS (2)
  1. ZYBAN [Suspect]
     Dosage: 150MG TWICE PER DAY
     Route: 048
     Dates: start: 20040506
  2. ORAL CONTRACEPTIVES [Concomitant]

REACTIONS (3)
  - ANXIETY [None]
  - PALPITATIONS [None]
  - URTICARIA [None]
